FAERS Safety Report 14488038 (Version 1)
Quarter: 2018Q1

REPORT INFORMATION
  Report Type: Spontaneous
  Country: US (occurrence: US)
  Receive Date: 20180205
  Receipt Date: 20180205
  Transmission Date: 20180509
  Serious: No
  Sender: FDA-Public Use
  Company Number: US-MYLANLABS-2018M1006438

PATIENT
  Sex: Female

DRUGS (3)
  1. METHADONE PILL [Concomitant]
     Indication: PRODUCT USED FOR UNKNOWN INDICATION
  2. PERCOCET                           /00446701/ [Concomitant]
     Active Substance: ACETAMINOPHEN\OXYCODONE HYDROCHLORIDE\OXYCODONE TEREPHTHALATE
     Indication: PRODUCT USED FOR UNKNOWN INDICATION
  3. FENTANYL TRANSDERMAL SYSTEM [Suspect]
     Active Substance: FENTANYL
     Indication: PAIN
     Dosage: 25 MCH/HOUR, EVERY 72 HOURS
     Route: 062
     Dates: start: 20180117

REACTIONS (5)
  - Nausea [Recovering/Resolving]
  - Tremor [Recovering/Resolving]
  - Chest pain [Recovering/Resolving]
  - Vomiting [Not Recovered/Not Resolved]
  - Pruritus [Unknown]

NARRATIVE: CASE EVENT DATE: 20180117
